FAERS Safety Report 4665895-5 (Version None)
Quarter: 2005Q2

REPORT INFORMATION
  Report Type: 
  Country: None (occurrence: None)
  Receive Date: 20050516
  Receipt Date: 20050516
  Transmission Date: 20051028
  Serious: Yes (Death, Hospitalization)
  Sender: FDA-Public Use
  Company Number: None

PATIENT
  Sex: Male
  Weight: 4.03 kg

DRUGS (10)
  1. METHOTREXATE [Suspect]
     Dosage: 7.5 MG IT ON DAY 1
     Route: 037
     Dates: start: 20050120, end: 20050302
  2. HYDROCORTISONE [Suspect]
     Dosage: 7.5 MG IT ON DAY 1
     Route: 037
     Dates: end: 20050302
  3. CYTARABINE [Suspect]
     Dosage: 15 MG IT ON DAY 1
     Route: 037
  4. LEUCOVORIN CALCIUM [Suspect]
     Dosage: 10 MG/M2 IVP Q 6H FOR 2 DOSES STARTING ON DAY 2 (42 HOURS AFTER THE ONSET OF HD MTX INFUSION) OF WEE
     Route: 042
  5. ETOPOSIDE [Suspect]
     Dosage: 100 MG /M2 IV OVER 2 HOURS QD STARTING ON DAY 15 FOR 5 DAYS
     Route: 042
  6. CYCLOPHOSPHAMIDE [Suspect]
     Dosage: 300 MG/M2 IV OVER 30 MINUTIES QD STARTING ON DAY 15 FOR 5 DAYS
     Route: 042
  7. MESNA [Suspect]
     Dosage: 150 MG/M2 IV OVER 30 MIN STARTING ON DAY 15 FOR 5 DAYS
  8. G-CSF (AMGEN) [Suspect]
     Dosage: 5 MCG/KG SC QD STARTING ON DAY 20 + 32 UNTIL ANC} 1500 FOR 2 CONSECTIVE DAYS POST NADIR
     Route: 058
  9. L-ASPARAGINASE [Suspect]
     Dosage: 6000 UNITS/KG IM ON DAY 31 (3 HOURS AFTER COMPLETION OF FINAL DOSE OF HDARAC)
     Route: 030
  10. CYTARABINE [Suspect]
     Dosage: 3 G/M2 IV OVER 3 HOURS Q12H FOR 4 DOSES STARTING ON DAY 29

REACTIONS (7)
  - CANDIDIASIS [None]
  - CARDIAC DISORDER [None]
  - CATHETER SEPSIS [None]
  - CEREBRAL HAEMORRHAGE [None]
  - COMPUTERISED TOMOGRAM ABNORMAL [None]
  - RENAL DISORDER [None]
  - STATUS EPILEPTICUS [None]
